FAERS Safety Report 17097194 (Version 1)
Quarter: 2019Q4

REPORT INFORMATION
  Report Type: Spontaneous
  Country: US (occurrence: US)
  Receive Date: 20191129
  Receipt Date: 20191129
  Transmission Date: 20200122
  Serious: Yes (Life-Threatening, Disabling, Other)
  Sender: FDA-Public Use
  Company Number: None

PATIENT
  Age: 48 Year
  Sex: Female
  Weight: 60.75 kg

DRUGS (3)
  1. ATRIPLA [Suspect]
     Active Substance: EFAVIRENZ\EMTRICITABINE\TENOFOVIR DISOPROXIL FUMARATE
     Indication: PRODUCT USED FOR UNKNOWN INDICATION
  2. COMPLERA [Suspect]
     Active Substance: EMTRICITABINE\RILPIVIRINE HYDROCHLORIDE\TENOFOVIR DISOPROXIL FUMARATE
  3. TRUVADA [Suspect]
     Active Substance: EMTRICITABINE\TENOFOVIR DISOPROXIL FUMARATE

REACTIONS (31)
  - Fatigue [None]
  - Dry eye [None]
  - Pollakiuria [None]
  - Injury [None]
  - Mineral deficiency [None]
  - Dehydration [None]
  - Dry skin [None]
  - Pain of skin [None]
  - Initial insomnia [None]
  - Hyperhidrosis [None]
  - Headache [None]
  - Sleep deficit [None]
  - Drug dependence [None]
  - Drug ineffective [None]
  - Disability [None]
  - Blister [None]
  - Inadequate housing [None]
  - Muscle spasms [None]
  - Insomnia [None]
  - Thirst [None]
  - Dry mouth [None]
  - Arthralgia [None]
  - Constipation [None]
  - Nail disorder [None]
  - Gastrooesophageal reflux disease [None]
  - Rash [None]
  - Asthma [None]
  - Acne [None]
  - Skin exfoliation [None]
  - Poor quality sleep [None]
  - Somnolence [None]

NARRATIVE: CASE EVENT DATE: 20080315
